FAERS Safety Report 5380984-8 (Version None)
Quarter: 2007Q3

REPORT INFORMATION
  Report Type: 
  Country: None (occurrence: None)
  Receive Date: 20070706
  Receipt Date: 20070627
  Transmission Date: 20080115
  Serious: Yes (Hospitalization)
  Sender: FDA-Public Use
  Company Number: GB-BRISTOL-MYERS SQUIBB COMPANY-13835525

PATIENT
  Age: 73 Year
  Sex: Female

DRUGS (7)
  1. METFORMIN HCL [Suspect]
     Indication: TYPE 2 DIABETES MELLITUS
     Dates: end: 20070604
  2. GLIPIZIDE [Suspect]
     Dosage: RESTARTED 5JUN07
     Route: 048
  3. PERINDOPRIL ERBUMINE [Suspect]
     Indication: BLOOD PRESSURE INCREASED
     Route: 048
     Dates: end: 20070604
  4. AMLODIPINE [Concomitant]
     Indication: HYPERTENSION
     Route: 048
     Dates: end: 20070604
  5. ASPIRIN [Concomitant]
     Indication: ANTICOAGULANT THERAPY
     Route: 048
     Dates: end: 20070604
  6. OMEPRAZOLE [Concomitant]
     Indication: PROPHYLAXIS
     Route: 048
  7. PRAVASTATIN [Concomitant]
     Indication: HYPERCHOLESTEROLAEMIA

REACTIONS (2)
  - LACTIC ACIDOSIS [None]
  - RENAL FAILURE ACUTE [None]
